FAERS Safety Report 9008877 (Version 1)
Quarter: 2013Q1

REPORT INFORMATION
  Report Type: Spontaneous
  Country: US (occurrence: US)
  Receive Date: 20130111
  Receipt Date: 20130111
  Transmission Date: 20140127
  Serious: Yes (Hospitalization, Other)
  Sender: FDA-Public Use
  Company Number: US-009507513-1301USA000974

PATIENT
  Age: 30 Year
  Sex: Female

DRUGS (9)
  1. SINGULAIR [Suspect]
  2. ZYRTEC [Suspect]
     Dosage: 60 MG, BID
     Route: 048
  3. ZOLOFT [Concomitant]
  4. LASIX (FUROSEMIDE) [Concomitant]
  5. DARVOCET-N [Concomitant]
  6. ORTHO-NOVUM 1/35 [Concomitant]
  7. ZANTAC [Concomitant]
  8. CELEXA [Concomitant]
  9. PREDNISONE [Concomitant]

REACTIONS (5)
  - Eyelid ptosis [Unknown]
  - Sensation of pressure [Unknown]
  - Dizziness postural [Unknown]
  - Bradycardia [Unknown]
  - Angioedema [Unknown]
